FAERS Safety Report 20048589 (Version 2)
Quarter: 2021Q4

REPORT INFORMATION
  Report Type: Spontaneous
  Country: US (occurrence: US)
  Receive Date: 20211109
  Receipt Date: 20211213
  Transmission Date: 20220303
  Serious: Yes (Other)
  Sender: FDA-Public Use
  Company Number: US-009507513-2111USA001609

PATIENT
  Age: 75 Year
  Sex: Male

DRUGS (2)
  1. VERQUVO [Suspect]
     Active Substance: VERICIGUAT
     Indication: Cardiovascular disorder
     Dosage: 2.5 MG, UNK
     Route: 048
  2. XARELTO [Suspect]
     Active Substance: RIVAROXABAN
     Dosage: UNK
     Route: 048

REACTIONS (2)
  - Angina pectoris [Unknown]
  - Pallor [Unknown]
